FAERS Safety Report 5723487-0 (Version None)
Quarter: 2008Q2

REPORT INFORMATION
  Report Type: 
  Country: None (occurrence: None)
  Receive Date: 20080425
  Receipt Date: 20070518
  Transmission Date: 20081010
  Serious: Yes (Hospitalization)
  Sender: FDA-Public Use
  Company Number: M7002-00004-SPO-US

PATIENT
  Age: 69 Year
  Sex: Female

DRUGS (10)
  1. ONTAK [Suspect]
     Dosage: 9 MCG, INTRAVENOUS
     Route: 042
  2. FUROSEMIDE [Concomitant]
  3. DESLORATADINE (DESLORATADINE) [Concomitant]
  4. LANSOPRAZOLE [Concomitant]
  5. RAMIPRIL [Concomitant]
  6. CELECOXIB [Concomitant]
  7. POTASSIUM CHLORIDE [Concomitant]
  8. GLUCOSAMINE CHONDROITIN (GLUCOSAMINE) [Concomitant]
  9. ASCORBIC ACID [Concomitant]
  10. ACETAMINOPHEN/OXYCODONE (OXYCOCET) [Concomitant]

REACTIONS (1)
  - BLINDNESS [None]
